FAERS Safety Report 4696463-7 (Version None)
Quarter: 2005Q2

REPORT INFORMATION
  Report Type: 
  Country: None (occurrence: None)
  Receive Date: 20050621
  Receipt Date: 20050609
  Transmission Date: 20051028
  Serious: Yes (Death, Hospitalization)
  Sender: FDA-Public Use
  Company Number: GB-MERCK-0506GBR00078

PATIENT
  Sex: Female

DRUGS (1)
  1. FOSAMAX [Suspect]
     Route: 048
     Dates: end: 19990101

REACTIONS (3)
  - BRONCHOSPASM [None]
  - DRUG ADMINISTRATION ERROR [None]
  - OESOPHAGEAL HAEMORRHAGE [None]
